FAERS Safety Report 4302935-7 (Version None)
Quarter: 2004Q1

REPORT INFORMATION
  Report Type: 
  Country: None (occurrence: None)
  Receive Date: 20040223
  Receipt Date: 20040223
  Transmission Date: 20041129
  Serious: Yes (Life-Threatening, Disabling, Other)
  Sender: FDA-Public Use
  Company Number: None

PATIENT
  Age: 48 Year
  Sex: Male
  Weight: 99.7913 kg

DRUGS (2)
  1. KENALOG [Suspect]
     Indication: BACK PAIN
     Dosage: 40 MG EPIDURAL
     Route: 008
     Dates: start: 20021223, end: 20030113
  2. KENALOG [Suspect]
     Indication: BACK PAIN
     Dosage: 40 MG EPIDURAL
     Route: 008
     Dates: start: 20021223, end: 20030113

REACTIONS (3)
  - LIGAMENT DISORDER [None]
  - PARALYSIS [None]
  - SPINAL FRACTURE [None]
